FAERS Safety Report 13534725 (Version 2)
Quarter: 2017Q3

REPORT INFORMATION
  Report Type: Spontaneous
  Country: AR (occurrence: AR)
  Receive Date: 20170511
  Receipt Date: 20170808
  Transmission Date: 20171127
  Serious: Yes (Other)
  Sender: FDA-Public Use
  Company Number: AR-AMGEN-ARGSP2017070828

PATIENT
  Age: 36 Year
  Sex: Female

DRUGS (1)
  1. ENBREL [Suspect]
     Active Substance: ETANERCEPT
     Indication: ANKYLOSING SPONDYLITIS
     Dosage: 50 MG, WEEKLY
     Route: 065
     Dates: start: 20130313

REACTIONS (6)
  - Disease recurrence [Unknown]
  - Drug ineffective [Recovering/Resolving]
  - Condition aggravated [Recovering/Resolving]
  - Uveitis [Recovering/Resolving]
  - Uveitis [Unknown]
  - Disease recurrence [Recovering/Resolving]

NARRATIVE: CASE EVENT DATE: 201606
